FAERS Safety Report 6733636-3 (Version None)
Quarter: 2010Q2

REPORT INFORMATION
  Report Type: 
  Country: None (occurrence: None)
  Receive Date: 20100520
  Receipt Date: 20100510
  Transmission Date: 20101027
  Serious: Yes (Other)
  Sender: FDA-Public Use
  Company Number: AU-PFIZER INC-2010058173

PATIENT
  Age: 31 Year
  Sex: Male

DRUGS (2)
  1. ZITHROMAX [Suspect]
     Indication: CHLAMYDIAL INFECTION
     Dosage: 500 MG TWO DOSES
     Dates: start: 20100312
  2. ARGININE [Concomitant]
     Indication: MEDICAL DIET

REACTIONS (7)
  - ANXIETY [None]
  - DEPRESSION [None]
  - HYPERACUSIS [None]
  - INSOMNIA [None]
  - NAUSEA [None]
  - PALPITATIONS [None]
  - TINNITUS [None]
